FAERS Safety Report 7512536-5 (Version None)
Quarter: 2011Q2

REPORT INFORMATION
  Report Type: 
  Country: None (occurrence: None)
  Receive Date: 20110520
  Receipt Date: 20110505
  Transmission Date: 20111010
  Serious: Yes (Hospitalization)
  Sender: FDA-Public Use
  Company Number: 2010002331

PATIENT
  Age: 55 Year
  Sex: Male

DRUGS (7)
  1. AMBIEN [Concomitant]
  2. COMPAZINE [Concomitant]
  3. PHENERGAN [Concomitant]
  4. COLACE (DUCUSATE SODIUM) [Concomitant]
  5. ERLOTINIB HYDROCHLORIDE [Suspect]
     Indication: HEPATIC NEOPLASM MALIGNANT
     Dosage: 150 MG QD, ORAL
     Route: 048
     Dates: start: 20100503, end: 20100517
  6. SORAFENIB (TABLET) [Suspect]
     Indication: HEPATIC NEOPLASM MALIGNANT
     Dosage: 800 MG QD, ORAL
     Route: 048
     Dates: start: 20100503, end: 20100517
  7. SENNA-MINT WAF [Concomitant]

REACTIONS (8)
  - SPLENOMEGALY [None]
  - CHEST PAIN [None]
  - ABDOMINAL PAIN [None]
  - DERMATITIS ACNEIFORM [None]
  - DYSPNOEA [None]
  - HEPATIC CIRRHOSIS [None]
  - PORTAL HYPERTENSION [None]
  - EPISTAXIS [None]
